FAERS Safety Report 7366554-0 (Version None)
Quarter: 2011Q1

REPORT INFORMATION
  Report Type: 
  Country: None (occurrence: None)
  Receive Date: 20110322
  Receipt Date: 20110315
  Transmission Date: 20110831
  Serious: Yes (Other)
  Sender: FDA-Public Use
  Company Number: US-AMGEN-USASP2011004023

PATIENT
  Age: 86 Year
  Sex: Female
  Weight: 71.655 kg

DRUGS (2)
  1. ENBREL [Suspect]
     Indication: ARTHRITIS
     Dosage: UNK
     Dates: start: 20110112
  2. ENBREL [Suspect]
     Indication: CERVICAL SPINAL STENOSIS

REACTIONS (3)
  - THERAPEUTIC RESPONSE DECREASED [None]
  - DEMENTIA ALZHEIMER'S TYPE [None]
  - INCORRECT ROUTE OF DRUG ADMINISTRATION [None]
